FAERS Safety Report 25720768 (Version 1)
Quarter: 2025Q3

REPORT INFORMATION
  Report Type: Spontaneous
  Country: JP (occurrence: JP)
  Receive Date: 20250825
  Receipt Date: 20250825
  Transmission Date: 20251021
  Serious: Yes (Other)
  Sender: ROCHE
  Company Number: JP-CHUGAI-2025026348

PATIENT
  Sex: Male

DRUGS (2)
  1. TECENTRIQ [Suspect]
     Active Substance: ATEZOLIZUMAB
     Indication: Hepatocellular carcinoma
     Dosage: UNK, ONCE/3WEEKS
     Route: 042
     Dates: start: 202504
  2. AVASTIN [Suspect]
     Active Substance: BEVACIZUMAB
     Indication: Hepatocellular carcinoma
     Dosage: UNK, ONCE/3WEEKS
     Route: 042
     Dates: start: 202504

REACTIONS (7)
  - Blood pressure increased [Unknown]
  - Hepatic cirrhosis [Unknown]
  - Visual acuity reduced [Unknown]
  - C-reactive protein increased [Unknown]
  - Arthropod bite [Unknown]
  - Physical deconditioning [Unknown]
  - Proteinuria [Unknown]

NARRATIVE: CASE EVENT DATE: 20250501
